FAERS Safety Report 17554497 (Version 3)
Quarter: 2021Q1

REPORT INFORMATION
  Report Type: Other
  Country: GB (occurrence: GB)
  Receive Date: 20200318
  Receipt Date: 20210317
  Transmission Date: 20210419
  Serious: No
  Sender: FDA-Public Use
  Company Number: GB-ROCHE-2567133

PATIENT
  Age: 41 Year
  Sex: Female

DRUGS (11)
  1. METHYLPREDNISOLONE. [Concomitant]
     Active Substance: METHYLPREDNISOLONE
     Indication: PREMEDICATION
     Route: 042
     Dates: start: 20191017, end: 20191017
  2. OCRELIZUMAB. [Suspect]
     Active Substance: OCRELIZUMAB
     Indication: PRIMARY PROGRESSIVE MULTIPLE SCLEROSIS
     Dosage: FORM STRENGTH: 300 MG/250 ML
     Route: 042
     Dates: start: 20191017, end: 20191017
  3. OCRELIZUMAB. [Suspect]
     Active Substance: OCRELIZUMAB
     Dosage: FORM STRENGTH: 300 MG/250 ML
     Route: 042
     Dates: start: 20191031, end: 20191031
  4. CANNABIS [Concomitant]
     Active Substance: CANNABIS SATIVA SUBSP. INDICA TOP
     Dosage: INHALED
  5. METHYLPREDNISOLONE. [Concomitant]
     Active Substance: METHYLPREDNISOLONE
     Route: 042
     Dates: start: 20191031, end: 20191031
  6. VITAMIN C [Concomitant]
     Active Substance: ASCORBIC ACID
     Dates: start: 2020
  7. PARACETAMOL [Concomitant]
     Active Substance: ACETAMINOPHEN
     Indication: PREMEDICATION
     Route: 048
     Dates: start: 20191017, end: 20191017
  8. CETRIZINE [Concomitant]
     Active Substance: CETIRIZINE HYDROCHLORIDE
     Route: 048
     Dates: start: 20191031, end: 20191031
  9. CETRIZINE [Concomitant]
     Active Substance: CETIRIZINE HYDROCHLORIDE
     Indication: PREMEDICATION
     Route: 048
     Dates: start: 20191017, end: 20191017
  10. PARACETAMOL [Concomitant]
     Active Substance: ACETAMINOPHEN
     Route: 048
     Dates: start: 20191031, end: 20191031
  11. UBIQUINOL [Concomitant]
     Active Substance: UBIQUINOL
     Dates: start: 2020

REACTIONS (1)
  - Genital herpes [Recovered/Resolved]

NARRATIVE: CASE EVENT DATE: 20200112
